FAERS Safety Report 7245939-7 (Version None)
Quarter: 2011Q1

REPORT INFORMATION
  Report Type: 
  Country: None (occurrence: None)
  Receive Date: 20110126
  Receipt Date: 20110114
  Transmission Date: 20110831
  Serious: Yes (Hospitalization)
  Sender: FDA-Public Use
  Company Number: MX-CELGENEUS-107-20785-11011502

PATIENT
  Age: 11 Year
  Sex: Male

DRUGS (12)
  1. IMIPRAMINE [Concomitant]
     Route: 065
  2. METHYLPREDNISOLONE [Concomitant]
     Route: 051
  3. CYCLOPHOSPHAMIDE [Concomitant]
     Route: 065
  4. CYCLOPHOSPHAMIDE [Concomitant]
     Route: 065
  5. THALIDOMIDE [Suspect]
     Route: 048
  6. THALIDOMIDE [Suspect]
     Route: 048
  7. ASA [Concomitant]
     Route: 065
  8. DIPYRIDAMOLE [Concomitant]
     Route: 065
  9. PREDNISONE [Concomitant]
     Route: 048
  10. THALIDOMIDE [Suspect]
     Indication: POLYARTERITIS NODOSA
     Route: 048
  11. DIURETICS [Concomitant]
     Route: 065
  12. PREDNISONE [Concomitant]
     Route: 065

REACTIONS (10)
  - HYPOTONIA [None]
  - POSITIVE ROMBERGISM [None]
  - MUSCULAR WEAKNESS [None]
  - VISUAL ACUITY REDUCED [None]
  - HEADACHE [None]
  - DIPLOPIA [None]
  - BALANCE DISORDER [None]
  - TINNITUS [None]
  - ATAXIA [None]
  - CEREBELLAR SYNDROME [None]
